FAERS Safety Report 7115987-6 (Version None)
Quarter: 2010Q4

REPORT INFORMATION
  Report Type: 
  Country: None (occurrence: None)
  Receive Date: 20101122
  Receipt Date: 20081218
  Transmission Date: 20110411
  Serious: Yes (Hospitalization)
  Sender: FDA-Public Use
  Company Number: ES-AMGEN-UK291230

PATIENT

DRUGS (6)
  1. PANITUMUMAB [Suspect]
     Indication: COLORECTAL CANCER
     Dosage: 660 MG, Q3WK
     Route: 042
     Dates: start: 20080612
  2. IRINOTECAN HCL [Suspect]
     Indication: CHEMOTHERAPY
     Dosage: 523 MG, Q3WK
     Route: 042
     Dates: start: 20080612
  3. METFORMIN [Concomitant]
     Dosage: 850 MG, QD
     Route: 048
     Dates: start: 20030101
  4. SIMVASTATIN [Concomitant]
     Dosage: 40 MG, QD
     Route: 048
     Dates: end: 20080628
  5. GLICLAZIDE [Concomitant]
     Dosage: 80 MG, QD
     Route: 048
     Dates: start: 20030101
  6. ACETYLSALICYLIC ACID [Concomitant]

REACTIONS (5)
  - ABDOMINAL DISTENSION [None]
  - ERYTHEMA [None]
  - ILEUS PARALYTIC [None]
  - RASH PUSTULAR [None]
  - STAPHYLOCOCCAL INFECTION [None]
